FAERS Safety Report 6840081-9 (Version None)
Quarter: 2010Q3

REPORT INFORMATION
  Report Type: 
  Country: None (occurrence: None)
  Receive Date: 20100713
  Receipt Date: 20100713
  Transmission Date: 20110219
  Serious: Yes (Congenital Anomaly)
  Sender: FDA-Public Use
  Company Number: None

PATIENT
  Age: 25 Year
  Sex: Male
  Weight: 81.6475 kg

DRUGS (1)
  1. PSORIASIN OINTMENT 2% COAL TAR ALVA-AMCO [Suspect]
     Indication: PSORIASIS
     Dosage: TOPICAL ONCE A DAY
     Route: 061
     Dates: start: 20090801, end: 20090914

REACTIONS (2)
  - INFERTILITY MALE [None]
  - NO THERAPEUTIC RESPONSE [None]
